FAERS Safety Report 5709062-2 (Version None)
Quarter: 2008Q2

REPORT INFORMATION
  Report Type: 
  Country: None (occurrence: None)
  Receive Date: 20080416
  Receipt Date: 20080416
  Transmission Date: 20081010
  Serious: Yes (Hospitalization)
  Sender: FDA-Public Use
  Company Number: None

PATIENT
  Sex: Female
  Weight: 94.1 kg

DRUGS (10)
  1. TEMOZOLOMIDE [Suspect]
     Dosage: 4480 MG
  2. ACYCLOVIR [Concomitant]
  3. CEFTRIAXONE [Concomitant]
  4. COLACE [Concomitant]
  5. KYTRIL [Concomitant]
  6. LOVENOX [Concomitant]
  7. PHENYTOIN [Concomitant]
  8. PROCHLORPERAZINE [Concomitant]
  9. ROLAIDS [Concomitant]
  10. VANCOMYCIN [Concomitant]

REACTIONS (4)
  - HAEMATOMA INFECTION [None]
  - RESPIRATORY DEPRESSION [None]
  - WOUND DEHISCENCE [None]
  - WOUND INFECTION [None]
